FAERS Safety Report 21865803 (Version 4)
Quarter: 2023Q2

REPORT INFORMATION
  Report Type: Report from Study
  Country: US (occurrence: US)
  Receive Date: 20230116
  Receipt Date: 20230630
  Transmission Date: 20230721
  Serious: Yes (Other)
  Sender: FDA-Public Use
  Company Number: US-TAKEDA-US202031634

PATIENT
  Sex: Female

DRUGS (3)
  1. HUMAN IMMUNOGLOBULIN G\HYALURONIDASE RECOMBINANT HUMAN [Suspect]
     Active Substance: HUMAN IMMUNOGLOBULIN G\HYALURONIDASE RECOMBINANT HUMAN
     Indication: Immunodeficiency common variable
     Dosage: UNK
     Route: 042
  2. HUMAN IMMUNOGLOBULIN G\HYALURONIDASE RECOMBINANT HUMAN [Suspect]
     Active Substance: HUMAN IMMUNOGLOBULIN G\HYALURONIDASE RECOMBINANT HUMAN
     Indication: Primary immunodeficiency syndrome
  3. ABILIFY [Suspect]
     Active Substance: ARIPIPRAZOLE
     Indication: Product used for unknown indication
     Dosage: UNK
     Route: 065

REACTIONS (13)
  - Autoimmune disorder [Unknown]
  - Cerebrovascular accident [Not Recovered/Not Resolved]
  - Infusion site scab [Unknown]
  - Sinusitis [Unknown]
  - Dry mouth [Unknown]
  - Sciatica [Unknown]
  - Insurance issue [Unknown]
  - Illness [Unknown]
  - Asthma [Unknown]
  - Migraine [Unknown]
  - Fatigue [Unknown]
  - Product use complaint [Unknown]
  - Incorrect dose administered [Unknown]
